FAERS Safety Report 5470541-7 (Version None)
Quarter: 2007Q3

REPORT INFORMATION
  Report Type: 
  Country: None (occurrence: None)
  Receive Date: 20070927
  Receipt Date: 20070927
  Transmission Date: 20080115
  Serious: No
  Sender: FDA-Public Use
  Company Number: None

PATIENT
  Age: 58 Year
  Sex: Female
  Weight: 60.3284 kg

DRUGS (2)
  1. ACTONEL [Suspect]
     Indication: OSTEOPENIA
     Dosage: BY MOUTH ONCE A WEEK
     Route: 048
     Dates: start: 20070923, end: 20070923
  2. ACTONEL [Suspect]
     Indication: OSTEOPOROSIS
     Dosage: BY MOUTH ONCE A WEEK
     Route: 048
     Dates: start: 20070923, end: 20070923

REACTIONS (8)
  - ARTHRALGIA [None]
  - HEADACHE [None]
  - HYPOVENTILATION [None]
  - JAW DISORDER [None]
  - MUSCLE STRAIN [None]
  - MUSCULOSKELETAL PAIN [None]
  - MUSCULOSKELETAL STIFFNESS [None]
  - NECK PAIN [None]
